FAERS Safety Report 26123068 (Version 1)
Quarter: 2025Q4

REPORT INFORMATION
  Report Type: Spontaneous
  Country: NZ (occurrence: None)
  Receive Date: 20251204
  Receipt Date: 20251204
  Transmission Date: 20260119
  Serious: Yes (Other)
  Sender: UCB
  Company Number: NZ-UCBSA-2025075780

PATIENT

DRUGS (2)
  1. VIMPAT [Suspect]
     Active Substance: LACOSAMIDE
     Indication: Product used for unknown indication
     Dosage: 600 MILLIGRAM, MAXIMUM DAILY DOSE
  2. VIMPAT [Suspect]
     Active Substance: LACOSAMIDE
     Dosage: 800 MILLIGRAM MAXIMUM DAILY DOSE

REACTIONS (4)
  - Arrhythmia [Unknown]
  - Atrioventricular block second degree [Unknown]
  - Dizziness [Unknown]
  - Prescribed overdose [Unknown]
